FAERS Safety Report 15022274 (Version 1)
Quarter: 2018Q2

REPORT INFORMATION
  Report Type: Spontaneous
  Country: US (occurrence: US)
  Receive Date: 20180618
  Receipt Date: 20180618
  Transmission Date: 20180711
  Serious: Yes (Other)
  Sender: FDA-Public Use
  Company Number: US-JNJFOC-20180611574

PATIENT
  Age: 13 Year
  Sex: Male
  Weight: 89 kg

DRUGS (1)
  1. STELARA [Suspect]
     Active Substance: USTEKINUMAB
     Indication: CROHN^S DISEASE
     Route: 058
     Dates: start: 201612

REACTIONS (4)
  - Off label use [Unknown]
  - Crohn^s disease [Unknown]
  - Drug level decreased [Unknown]
  - Product use issue [Unknown]

NARRATIVE: CASE EVENT DATE: 201612
